APPROVED DRUG PRODUCT: MYKINAC
Active Ingredient: NYSTATIN
Strength: 100,000 UNITS/GM
Dosage Form/Route: OINTMENT;TOPICAL
Application: A062731 | Product #001
Applicant: ALPHARMA US PHARMACEUTICALS DIVISION
Approved: Sep 22, 1986 | RLD: No | RS: No | Type: DISCN